FAERS Safety Report 19459491 (Version 1)
Quarter: 2021Q2

REPORT INFORMATION
  Report Type: Spontaneous
  Country: GB (occurrence: GB)
  Receive Date: 20210624
  Receipt Date: 20210624
  Transmission Date: 20210717
  Serious: Yes (Death)
  Sender: FDA-Public Use
  Company Number: GB-AMNEAL PHARMACEUTICALS-2021-AMRX-02429

PATIENT

DRUGS (1)
  1. LAMOTRIGINE ODT [Suspect]
     Active Substance: LAMOTRIGINE
     Indication: PARTIAL SEIZURES
     Dosage: UNK
     Route: 048

REACTIONS (1)
  - Adverse event [Fatal]
